FAERS Safety Report 6083366-9 (Version None)
Quarter: 2009Q1

REPORT INFORMATION
  Report Type: 
  Country: None (occurrence: None)
  Receive Date: 20090219
  Receipt Date: 20090216
  Transmission Date: 20090719
  Serious: Yes (Other)
  Sender: FDA-Public Use
  Company Number: CN-BAYER-200913686GPV

PATIENT
  Age: 51 Year
  Sex: Female

DRUGS (1)
  1. AVELOX [Suspect]
     Indication: INFLAMMATION
     Route: 042
     Dates: start: 20080202, end: 20080202

REACTIONS (1)
  - DYSKINESIA [None]
